FAERS Safety Report 9495050 (Version 1)
Quarter: 2013Q3

REPORT INFORMATION
  Report Type: Spontaneous
  Country: US (occurrence: None)
  Receive Date: 20130830
  Receipt Date: 20130830
  Transmission Date: 20140515
  Serious: Yes (Life-Threatening, Hospitalization, Disabling, Other)
  Sender: FDA-Public Use
  Company Number: None

PATIENT
  Age: 52 Year
  Sex: Female
  Weight: 58.97 kg

DRUGS (2)
  1. SEROQUEL [Suspect]
     Indication: SOMNAMBULISM
  2. SEROQUEL [Suspect]
     Indication: SCHIZOAFFECTIVE DISORDER

REACTIONS (3)
  - Somnambulism [None]
  - Thermal burn [None]
  - Fall [None]
